FAERS Safety Report 23674764 (Version 1)
Quarter: 2024Q1

REPORT INFORMATION
  Report Type: Spontaneous
  Country: DE (occurrence: DE)
  Receive Date: 20240326
  Receipt Date: 20240326
  Transmission Date: 20240409
  Serious: Yes (Life-Threatening, Hospitalization)
  Sender: FDA-Public Use
  Company Number: DE-BoehringerIngelheim-2024-BI-014690

PATIENT
  Age: 79 Year
  Sex: Male
  Weight: 76 kg

DRUGS (12)
  1. JARDIANCE [Suspect]
     Active Substance: EMPAGLIFLOZIN
     Indication: Type 2 diabetes mellitus
     Route: 048
     Dates: start: 20240216, end: 20240222
  2. Delix 5 mg Tabletten [Concomitant]
     Indication: Product used for unknown indication
     Dosage: 1-0-1-0
  3. METFORMIN [Concomitant]
     Active Substance: METFORMIN HYDROCHLORIDE
     Indication: Type 2 diabetes mellitus
     Dosage: 2X1000
  4. Liprolog Mix 25 [Concomitant]
     Indication: Type 2 diabetes mellitus
     Dosage: 6-0-4
     Route: 058
     Dates: start: 2023
  5. SITAGLIPTIN [Concomitant]
     Active Substance: SITAGLIPTIN
     Indication: Product used for unknown indication
     Dosage: DAILY DOSE: 100
     Route: 048
  6. JANUMET [Concomitant]
     Active Substance: METFORMIN HYDROCHLORIDE\SITAGLIPTIN PHOSPHATE
     Indication: Type 2 diabetes mellitus
  7. Kalium Verla, 20 mmol [Concomitant]
     Indication: Product used for unknown indication
     Route: 048
  8. Clexane 8000 IE (80 mg)/0.8 ml Medicopharm [Concomitant]
     Indication: Product used for unknown indication
     Dosage: 1-0-1-0
  9. Kalinor-retard P 600 mg [Concomitant]
     Indication: Product used for unknown indication
  10. Beloc-Zok mite 47.5 mg [Concomitant]
     Indication: Product used for unknown indication
     Dosage: 1-0-0-0
  11. Abasaglar 100 E/ml [Concomitant]
     Indication: Product used for unknown indication
     Dosage: 0-0-8-0
  12. Actrapid Flex Pen 100 Internationale Einheiten/ml [Concomitant]
     Indication: Product used for unknown indication
     Dosage: AFTER SCHEME

REACTIONS (5)
  - Ketoacidosis [Recovered/Resolved]
  - Dehydration [Unknown]
  - Atrial fibrillation [Unknown]
  - Prostatomegaly [Unknown]
  - Hypophosphataemia [Unknown]

NARRATIVE: CASE EVENT DATE: 20240222
